FAERS Safety Report 5193235-4 (Version None)
Quarter: 2006Q4

REPORT INFORMATION
  Report Type: 
  Country: None (occurrence: None)
  Receive Date: 20061228
  Receipt Date: 20060725
  Transmission Date: 20070319
  Serious: No
  Sender: FDA-Public Use
  Company Number: US-GLAXOSMITHKLINE-A0613490A

PATIENT
  Sex: Male

DRUGS (2)
  1. AVODART [Suspect]
     Indication: BENIGN PROSTATIC HYPERPLASIA
     Dosage: .5MG PER DAY
     Route: 048
     Dates: start: 20060724
  2. UROXATRAL [Suspect]
     Dosage: 10MG PER DAY
     Route: 048
     Dates: start: 20060724, end: 20060725

REACTIONS (3)
  - DIZZINESS POSTURAL [None]
  - FALL [None]
  - MUSCULAR WEAKNESS [None]
